FAERS Safety Report 18347336 (Version 3)
Quarter: 2020Q4

REPORT INFORMATION
  Report Type: Report from Study
  Country: CA (occurrence: CA)
  Receive Date: 20201005
  Receipt Date: 20201117
  Transmission Date: 20210114
  Serious: Yes (Other)
  Sender: FDA-Public Use
  Company Number: CA-BEH-2020123229

PATIENT
  Sex: Female

DRUGS (9)
  1. BERINERT [Suspect]
     Active Substance: HUMAN C1-ESTERASE INHIBITOR
     Dosage: UNK
     Route: 042
  2. BERINERT [Suspect]
     Active Substance: HUMAN C1-ESTERASE INHIBITOR
     Indication: HEREDITARY ANGIOEDEMA WITH C1 ESTERASE INHIBITOR DEFICIENCY
     Dosage: 1500 INTERNATIONAL UNIT, TIW
     Route: 042
     Dates: start: 2020
  3. BERINERT [Suspect]
     Active Substance: HUMAN C1-ESTERASE INHIBITOR
     Dosage: UNK
     Route: 042
  4. NALTREXONE [Concomitant]
     Active Substance: NALTREXONE
     Dosage: LOW DOSE
     Route: 065
  5. BERINERT [Suspect]
     Active Substance: HUMAN C1-ESTERASE INHIBITOR
     Dosage: UNK
     Route: 042
  6. BERINERT [Suspect]
     Active Substance: HUMAN C1-ESTERASE INHIBITOR
     Indication: PROPHYLAXIS
     Dosage: 1500 INTERNATIONAL UNIT, PRN
     Route: 042
     Dates: start: 2020
  7. BERINERT [Suspect]
     Active Substance: HUMAN C1-ESTERASE INHIBITOR
     Indication: PROPHYLAXIS
     Dosage: 1500 INTERNATIONAL UNIT, PRN
     Route: 042
     Dates: start: 2020
  8. BERINERT [Suspect]
     Active Substance: HUMAN C1-ESTERASE INHIBITOR
     Dosage: UNK
     Route: 042
  9. BERINERT [Suspect]
     Active Substance: HUMAN C1-ESTERASE INHIBITOR
     Indication: HEREDITARY ANGIOEDEMA WITH C1 ESTERASE INHIBITOR DEFICIENCY
     Dosage: 1500 INTERNATIONAL UNIT, TIW
     Route: 042
     Dates: start: 2020

REACTIONS (6)
  - Drug ineffective for unapproved indication [Recovering/Resolving]
  - Product preparation issue [Unknown]
  - No adverse event [Unknown]
  - Product use in unapproved indication [Unknown]
  - Device issue [Unknown]
  - Hereditary angioedema [Recovering/Resolving]
